FAERS Safety Report 8925004 (Version 1)
Quarter: 2012Q4

REPORT INFORMATION
  Report Type: Spontaneous
  Country: JP (occurrence: None)
  Receive Date: 20121116
  Receipt Date: 20121116
  Transmission Date: 20130627
  Serious: Yes (Hospitalization, Other)
  Sender: FDA-Public Use
  Company Number: 2009JP000094

PATIENT
  Age: 46 Year
  Sex: Female
  Weight: 44.7 kg

DRUGS (22)
  1. TACROLIMUS [Suspect]
     Indication: LUPUS NEPHRITIS
     Route: 048
     Dates: start: 20080414
  2. PREDNISOLONE [Suspect]
  3. BREDININ (MIZORIBINE) [Concomitant]
  4. ZEFIX (LAMIVUDINE) [Concomitant]
  5. LASIX (FUROSEMIDE) [Concomitant]
  6. ACECOL (TEMOCAPRIL HYDROCHLORIDE) [Concomitant]
  7. BACTRAMIN (SULFAMETHOXAZOLE, TRIMETHOPRIM) [Concomitant]
  8. NATRIX (INDAPAMIDE) [Concomitant]
  9. NATRIX (INDAPAMIDE) [Concomitant]
  10. ZYLORIC (ALLOPURINOL) [Concomitant]
  11. BENET (RISEDRONAT ESODIUM) [Concomitant]
  12. LIPITOR (ATORVASTATIN CALCIUM) [Concomitant]
  13. ASPARA K (ASPARTATE POTASSIUM) [Concomitant]
  14. LOXONIN (LOSOPROFEN) [Concomitant]
  15. VOLTAREN (DICLOFENAC SODIUM) [Concomitant]
  16. FOSAMAC (ALENDRONATE SODIUM) [Concomitant]
  17. HUMALOG (INSULIN LISPRO) [Concomitant]
  18. DIOVAN (VALSARTAN) [Concomitant]
  19. METHYCOBAL (MECOBALAMIN) [Concomitant]
  20. METHYCOBAL (MECOBALAMIN) [Concomitant]
  21. ADETPHOS (ADENOSINE TRIPHOSPHATE, DISODIUM SALT) [Concomitant]
  22. BUFFERIN /00002701/ (ACETYLSALICYLI ACID) [Concomitant]

REACTIONS (8)
  - Intentional overdose [None]
  - VIIth nerve paralysis [None]
  - Nasal vestibulitis [None]
  - Nasopharyngitis [None]
  - Hyperuricaemia [None]
  - Blood urea increased [None]
  - White blood cell count increased [None]
  - Infection [None]
